FAERS Safety Report 4824819-8 (Version None)
Quarter: 2005Q4

REPORT INFORMATION
  Report Type: 
  Country: None (occurrence: None)
  Receive Date: 20051110
  Receipt Date: 20051031
  Transmission Date: 20060501
  Serious: Yes (Hospitalization)
  Sender: FDA-Public Use
  Company Number: DK-SANOFI-SYNTHELABO-F01200502282

PATIENT
  Sex: Male

DRUGS (3)
  1. OXALIPLATIN [Suspect]
     Indication: COLORECTAL CANCER METASTATIC
     Route: 042
     Dates: start: 20050701
  2. CAPECITABINE [Suspect]
     Dosage: 1900 MG TWICE DAILY FROM DAYS 1-14 EVERY 3 WEEKS
     Route: 048
     Dates: start: 20050701
  3. INNOHEP [Concomitant]
     Dosage: UNK
     Route: 065
     Dates: start: 20050930

REACTIONS (1)
  - RETINAL DETACHMENT [None]
